FAERS Safety Report 4820661-2 (Version None)
Quarter: 2005Q4

REPORT INFORMATION
  Report Type: 
  Country: None (occurrence: None)
  Receive Date: 20051014
  Receipt Date: 20050701
  Transmission Date: 20060501
  Serious: No
  Sender: FDA-Public Use
  Company Number: 2005SP001701

PATIENT
  Age: 78 Year
  Sex: Male
  Weight: 81.6475 kg

DRUGS (3)
  1. LUNESTA [Suspect]
     Indication: INSOMNIA
     Dosage: 1 MG; HS; ORAL; 1 MG; X1; ORAL; 3 MG; HS; ORAL; HS; ORAL
     Route: 048
     Dates: start: 20050101, end: 20050101
  2. LUNESTA [Suspect]
     Indication: INSOMNIA
     Dosage: 1 MG; HS; ORAL; 1 MG; X1; ORAL; 3 MG; HS; ORAL; HS; ORAL
     Route: 048
     Dates: start: 20050616, end: 20050617
  3. LUNESTA [Suspect]
     Indication: INSOMNIA
     Dosage: 1 MG; HS; ORAL; 1 MG; X1; ORAL; 3 MG; HS; ORAL; HS; ORAL
     Route: 048
     Dates: start: 20050618, end: 20050618

REACTIONS (4)
  - ASTHENIA [None]
  - DRUG INEFFECTIVE [None]
  - INITIAL INSOMNIA [None]
  - SOMNOLENCE [None]
